FAERS Safety Report 24077324 (Version 1)
Quarter: 2024Q3

REPORT INFORMATION
  Report Type: Spontaneous
  Country: US (occurrence: US)
  Receive Date: 20240711
  Receipt Date: 20240711
  Transmission Date: 20241016
  Serious: No
  Sender: PIERRE FABRE MEDICAMENT
  Company Number: US-PFM-2023-04005

PATIENT
  Sex: Male

DRUGS (1)
  1. HEMANGEOL [Suspect]
     Active Substance: PROPRANOLOL HYDROCHLORIDE
     Indication: Haemangioma
     Dosage: 0.5 ML, TID (3/DAY)
     Route: 048
     Dates: start: 20230518

REACTIONS (3)
  - Sleep disorder [Unknown]
  - Inappropriate schedule of product administration [Unknown]
  - Off label use [Unknown]
